FAERS Safety Report 13875150 (Version 1)
Quarter: 2017Q3

REPORT INFORMATION
  Report Type: Spontaneous
  Country: US (occurrence: US)
  Receive Date: 20170816
  Receipt Date: 20170816
  Transmission Date: 20171127
  Serious: Yes (Hospitalization)
  Sender: FDA-Public Use
  Company Number: US-BEH-2017082810

PATIENT
  Age: 72 Year
  Sex: Female
  Weight: 91.61 kg

DRUGS (35)
  1. METHOTREXATE. [Concomitant]
     Active Substance: METHOTREXATE
  2. TURMERIC                           /01079602/ [Concomitant]
     Active Substance: HERBALS\TURMERIC
  3. VENLAFAXINE [Concomitant]
     Active Substance: VENLAFAXINE HYDROCHLORIDE
  4. HEPARIN [Concomitant]
     Active Substance: HEPARIN SODIUM
  5. LMX                                /00033401/ [Concomitant]
  6. VENTOLIN [Concomitant]
     Active Substance: ALBUTEROL SULFATE
  7. BIOTIN [Concomitant]
     Active Substance: BIOTIN
  8. CINNAMON                           /01647501/ [Concomitant]
     Active Substance: CINNAMON
  9. HYDROCODONE W/APAP                 /00607101/ [Concomitant]
  10. VITAMIN D3 [Concomitant]
     Active Substance: CHOLECALCIFEROL
  11. BISOPROLOL [Concomitant]
     Active Substance: BISOPROLOL
  12. CALCIUM MAGNESIUM ZINC             /01320801/ [Concomitant]
  13. EPIPEN [Concomitant]
     Active Substance: EPINEPHRINE
  14. METOLAZONE. [Concomitant]
     Active Substance: METOLAZONE
  15. POTASSIUM CHLORIDE. [Concomitant]
     Active Substance: POTASSIUM CHLORIDE
  16. FOLIC ACID. [Concomitant]
     Active Substance: FOLIC ACID
  17. ACETAMINOPHEN. [Concomitant]
     Active Substance: ACETAMINOPHEN
  18. ARICEPT [Concomitant]
     Active Substance: DONEPEZIL HYDROCHLORIDE
  19. VOLTAREN [Concomitant]
     Active Substance: DICLOFENAC SODIUM
  20. PRIVIGEN [Suspect]
     Active Substance: HUMAN IMMUNOGLOBULIN G
     Indication: IMMUNODEFICIENCY COMMON VARIABLE
     Dosage: 40 G, QMT
     Route: 042
     Dates: start: 20170308
  21. ALENDRONATE [Concomitant]
     Active Substance: ALENDRONATE SODIUM
  22. FISH OIL [Concomitant]
     Active Substance: FISH OIL
  23. SODIUM CHLORIDE. [Concomitant]
     Active Substance: SODIUM CHLORIDE
  24. ZYRTEC [Concomitant]
     Active Substance: CETIRIZINE HYDROCHLORIDE
  25. VITAMIN D                          /00107901/ [Concomitant]
     Active Substance: ERGOCALCIFEROL
  26. IRON [Concomitant]
     Active Substance: IRON
  27. ACTEMRA [Concomitant]
     Active Substance: TOCILIZUMAB
  28. PRIVIGEN [Suspect]
     Active Substance: HUMAN IMMUNOGLOBULIN G
     Dosage: UNK
     Route: 042
  29. BIOFREEZE                          /00482701/ [Concomitant]
  30. NAMENDA [Concomitant]
     Active Substance: MEMANTINE HYDROCHLORIDE
  31. OXCARBAZEPINE. [Concomitant]
     Active Substance: OXCARBAZEPINE
  32. ASPIRIN. [Concomitant]
     Active Substance: ASPIRIN
  33. ALLOPURINOL. [Concomitant]
     Active Substance: ALLOPURINOL
  34. D-MANNOSE [Concomitant]
  35. DIPHENHYDRAMINE. [Concomitant]
     Active Substance: DIPHENHYDRAMINE

REACTIONS (1)
  - Atrial fibrillation [Recovered/Resolved]

NARRATIVE: CASE EVENT DATE: 20170719
